FAERS Safety Report 8024407-9 (Version None)
Quarter: 2011Q4

REPORT INFORMATION
  Report Type: 
  Country: None (occurrence: None)
  Receive Date: 20111130
  Receipt Date: 20110727
  Transmission Date: 20120403
  Serious: Yes (Other)
  Sender: FDA-Public Use
  Company Number: 332729

PATIENT
  Age: 32 Year
  Sex: Male

DRUGS (1)
  1. NOVOLOG [Suspect]
     Indication: TYPE 1 DIABETES MELLITUS
     Dosage: UNK, SUBCUTANEOUS
     Route: 058

REACTIONS (2)
  - PRODUCT QUALITY ISSUE [None]
  - DIABETIC KETOACIDOSIS [None]
